FAERS Safety Report 7420818-0 (Version None)
Quarter: 2011Q2

REPORT INFORMATION
  Report Type: 
  Country: None (occurrence: None)
  Receive Date: 20110418
  Receipt Date: 20110411
  Transmission Date: 20111010
  Serious: Yes (Other)
  Sender: FDA-Public Use
  Company Number: IE-ROCHE-769921

PATIENT
  Age: 43 Year
  Sex: Male

DRUGS (1)
  1. LARIAM [Suspect]
     Indication: MALARIA PROPHYLAXIS
     Route: 065
     Dates: start: 20030101, end: 20040101

REACTIONS (11)
  - WEIGHT DECREASED [None]
  - MOOD SWINGS [None]
  - ACNE [None]
  - INSOMNIA [None]
  - SUICIDAL IDEATION [None]
  - ABNORMAL BEHAVIOUR [None]
  - FATIGUE [None]
  - SKIN DISORDER [None]
  - AGGRESSION [None]
  - MEMORY IMPAIRMENT [None]
  - DEPRESSION [None]
